FAERS Safety Report 5696832-2 (Version None)
Quarter: 2008Q2

REPORT INFORMATION
  Report Type: 
  Country: None (occurrence: None)
  Receive Date: 20080408
  Receipt Date: 20080327
  Transmission Date: 20081010
  Serious: Yes (Hospitalization)
  Sender: FDA-Public Use
  Company Number: FR-WYE-H03435908

PATIENT
  Sex: Female

DRUGS (4)
  1. INIPOMP [Suspect]
     Dosage: 40 MG, FREQUENCY UNKNOWN
     Route: 048
     Dates: end: 20080220
  2. BREXIN ^EURO-LABOR^ [Suspect]
     Dosage: ^DF^
     Route: 048
  3. LEVOTHYROXINE SODIUM [Concomitant]
     Indication: HYPOTHYROIDISM
     Dosage: ^DF^
     Route: 048
  4. MICARDIS [Suspect]
     Dosage: 40 MG, FREQUENCY UNKNOWN
     Route: 048

REACTIONS (4)
  - HEADACHE [None]
  - HYPONATRAEMIA [None]
  - HYPOTENSION [None]
  - TINNITUS [None]
